FAERS Safety Report 9778201 (Version 1)
Quarter: 2013Q4

REPORT INFORMATION
  Report Type: Spontaneous
  Country: US (occurrence: US)
  Receive Date: 20131223
  Receipt Date: 20131223
  Transmission Date: 20140711
  Serious: Yes (Other)
  Sender: FDA-Public Use
  Company Number: PHEH2013US026072

PATIENT
  Sex: Female

DRUGS (10)
  1. TASIGNA [Suspect]
     Dosage: 600 MG, UNK
     Route: 048
     Dates: start: 201210
  2. TASIGNA [Interacting]
     Dosage: 600 MG, UNK
     Route: 048
     Dates: start: 201211
  3. ZANTAC [Interacting]
     Indication: ANTACID THERAPY
     Dosage: 50 MG, UNK
     Route: 048
     Dates: start: 201308
  4. ZOLOFT [Concomitant]
  5. BENDIL [Concomitant]
  6. MULTI VITAMIN + MINERAL [Concomitant]
  7. VITAMIN D3 [Concomitant]
  8. CALCIUM [Concomitant]
  9. LUTIN [Concomitant]
  10. BABY ASPIRIN [Concomitant]

REACTIONS (4)
  - Pancreatitis [Recovered/Resolved]
  - Dyspepsia [Unknown]
  - Drug level increased [Unknown]
  - Drug interaction [Unknown]
